FAERS Safety Report 21815328 (Version 1)
Quarter: 2023Q1

REPORT INFORMATION
  Report Type: Report from Study
  Country: US (occurrence: US)
  Receive Date: 20230104
  Receipt Date: 20230104
  Transmission Date: 20230418
  Serious: No
  Sender: FDA-Public Use
  Company Number: US-ABBVIE-4215433

PATIENT
  Sex: Female

DRUGS (3)
  1. SKYRIZI [Suspect]
     Active Substance: RISANKIZUMAB-RZAA
     Indication: Psoriasis
     Dosage: THERAPY START DATE AND END DATE WAS 24 JUN 2022 . WEEK 0
     Route: 058
  2. SKYRIZI [Suspect]
     Active Substance: RISANKIZUMAB-RZAA
     Dosage: START AND END DATE 3 OCT 2022. WEEK 4
     Route: 058
  3. SKYRIZI [Suspect]
     Active Substance: RISANKIZUMAB-RZAA
     Dosage: THERAPY START DATE 2022
     Route: 058

REACTIONS (2)
  - General physical health deterioration [Unknown]
  - Psoriasis [Unknown]

NARRATIVE: CASE EVENT DATE: 20220101
